FAERS Safety Report 6550187-X (Version None)
Quarter: 2010Q1

REPORT INFORMATION
  Report Type: 
  Country: None (occurrence: None)
  Receive Date: 20100125
  Receipt Date: 20100115
  Transmission Date: 20100710
  Serious: Yes (Other)
  Sender: FDA-Public Use
  Company Number: US-PFIZER INC-2010006981

PATIENT
  Sex: Female
  Weight: 79.378 kg

DRUGS (2)
  1. DETROL [Suspect]
     Indication: MICTURITION URGENCY
     Route: 048
     Dates: start: 19900101
  2. ZYRTEC [Concomitant]

REACTIONS (4)
  - HYPERTENSION [None]
  - MUSCLE DISORDER [None]
  - MUSCULAR WEAKNESS [None]
  - WEIGHT INCREASED [None]
